FAERS Safety Report 11071226 (Version 1)
Quarter: 2015Q2

REPORT INFORMATION
  Report Type: Spontaneous
  Country: US (occurrence: None)
  Receive Date: 20150427
  Receipt Date: 20150427
  Transmission Date: 20150821
  Serious: No
  Sender: FDA-Public Use
  Company Number: None

PATIENT
  Age: 54 Year
  Sex: Male
  Weight: 113.4 kg

DRUGS (4)
  1. FISH OIL [Concomitant]
     Active Substance: FISH OIL
  2. ASPIRIN (EQUALINE) [Concomitant]
  3. MULTIVITAMIN/MULTIMINERAL SUPPLEMENT (EXUALINE CENTURY MATURE, EQUIVALENT TO CENTRUM SILVER) [Concomitant]
  4. FLONASE [Suspect]
     Active Substance: FLUTICASONE PROPIONATE
     Indication: HYPERSENSITIVITY
     Dosage: 100 MCG (50X2 ) INTO EACH NOSTRIL
     Route: 045
     Dates: start: 20150301, end: 20150316

REACTIONS (2)
  - Dysgeusia [None]
  - Parosmia [None]

NARRATIVE: CASE EVENT DATE: 20150316
